FAERS Safety Report 15108779 (Version 1)
Quarter: 2018Q3

REPORT INFORMATION
  Report Type: Spontaneous
  Country: US (occurrence: US)
  Receive Date: 20180705
  Receipt Date: 20180705
  Transmission Date: 20181010
  Serious: No
  Sender: FDA-Public Use
  Company Number: US-BIOGEN-2018BI00602967

PATIENT
  Sex: Male

DRUGS (1)
  1. TYSABRI [Suspect]
     Active Substance: NATALIZUMAB
     Indication: MULTIPLE SCLEROSIS
     Dosage: 300 MG INFUSED INTRAVENOUSLY EVERY 4 WEEKS IN PHYSICIAN^S OFFICE
     Route: 050
     Dates: start: 2016

REACTIONS (1)
  - Multiple sclerosis relapse [Recovered/Resolved]
